FAERS Safety Report 5569143-3 (Version None)
Quarter: 2007Q4

REPORT INFORMATION
  Report Type: 
  Country: None (occurrence: None)
  Receive Date: 20071220
  Receipt Date: 20071105
  Transmission Date: 20080405
  Serious: No
  Sender: FDA-Public Use
  Company Number: A0667654A

PATIENT
  Age: 67 Year
  Sex: Male

DRUGS (7)
  1. AVODART [Suspect]
     Indication: BENIGN PROSTATIC HYPERPLASIA
     Dosage: .5MG PER DAY
     Route: 048
     Dates: start: 20070715, end: 20070723
  2. FLOMAX [Concomitant]
  3. LIPITOR [Concomitant]
  4. HYDROCHLOROTHIAZIDE [Concomitant]
  5. UNKNOWN MEDICATION [Concomitant]
  6. ASPIRIN [Concomitant]
  7. WATER PILL [Concomitant]

REACTIONS (3)
  - DYSPAREUNIA [None]
  - PHARMACEUTICAL PRODUCT COMPLAINT [None]
  - URINE FLOW DECREASED [None]
